FAERS Safety Report 5448279-1 (Version None)
Quarter: 2007Q3

REPORT INFORMATION
  Report Type: 
  Country: None (occurrence: None)
  Receive Date: 20070911
  Receipt Date: 20070904
  Transmission Date: 20080115
  Serious: Yes (Other)
  Sender: FDA-Public Use
  Company Number: PHBS2007JP14691

PATIENT
  Sex: Male

DRUGS (3)
  1. NORVASC [Concomitant]
     Route: 048
  2. ADALAT [Concomitant]
     Route: 048
  3. DIOVAN [Suspect]
     Route: 048

REACTIONS (2)
  - BLOOD CREATINE PHOSPHOKINASE INCREASED [None]
  - LISTLESS [None]
